FAERS Safety Report 9302586 (Version 1)
Quarter: 2013Q2

REPORT INFORMATION
  Report Type: Spontaneous
  Country: DE (occurrence: None)
  Receive Date: 20130517
  Receipt Date: 20130517
  Transmission Date: 20140414
  Serious: Yes (Other)
  Sender: FDA-Public Use
  Company Number: DSM-2013-00461

PATIENT
  Age: 73 Year
  Sex: Female

DRUGS (1)
  1. OLMETEC [Suspect]
     Indication: HYPERTENSION
     Dosage: (10 MG, 1 IN 1 D)
     Route: 048
     Dates: start: 201210, end: 20130422

REACTIONS (10)
  - Somnolence [None]
  - Fatigue [None]
  - Dizziness [None]
  - Nausea [None]
  - Abdominal pain upper [None]
  - Diarrhoea [None]
  - Dysphagia [None]
  - Oedema peripheral [None]
  - Lacrimation increased [None]
  - Visual impairment [None]
